FAERS Safety Report 21889518 (Version 1)
Quarter: 2023Q1

REPORT INFORMATION
  Report Type: Spontaneous
  Country: US (occurrence: None)
  Receive Date: 20230119
  Receipt Date: 20230119
  Transmission Date: 20230418
  Serious: Yes (Hospitalization)
  Sender: FDA-Public Use
  Company Number: None

PATIENT
  Sex: Female

DRUGS (2)
  1. ICATIBANT ACETATE [Suspect]
     Active Substance: ICATIBANT ACETATE
     Indication: Complement factor abnormal
     Dosage: 30MG AS NEEDED SUBCUTANEOUS
     Route: 058
     Dates: start: 20190509
  2. PREDNISONE [Suspect]
     Active Substance: PREDNISONE

REACTIONS (5)
  - Weight increased [None]
  - Mouth swelling [None]
  - Swollen tongue [None]
  - Musculoskeletal disorder [None]
  - Swelling [None]
